FAERS Safety Report 13330196 (Version 1)
Quarter: 2017Q1

REPORT INFORMATION
  Report Type: Spontaneous
  Country: CA (occurrence: CA)
  Receive Date: 20170314
  Receipt Date: 20170314
  Transmission Date: 20170428
  Serious: Yes (Disabling)
  Sender: FDA-Public Use
  Company Number: CA-TEVA-747772ACC

PATIENT
  Sex: Male

DRUGS (4)
  1. VINCRISTINE SULFATE INJECTION USP [Suspect]
     Active Substance: VINCRISTINE SULFATE
     Indication: HEPATOBLASTOMA
     Route: 065
  2. DOXORUBICIN HYDROCHLORIDE INJECTION [Concomitant]
     Active Substance: DOXORUBICIN HYDROCHLORIDE
  3. FLUOROURACIL INJECTION USP [Concomitant]
     Active Substance: FLUOROURACIL
  4. CISPLATIN INJECTION [Suspect]
     Active Substance: CISPLATIN
     Indication: HEPATOBLASTOMA
     Route: 042

REACTIONS (1)
  - Ototoxicity [Unknown]
